FAERS Safety Report 18110047 (Version 1)
Quarter: 2020Q3

REPORT INFORMATION
  Report Type: Report from Study
  Country: IT (occurrence: IT)
  Receive Date: 20200804
  Receipt Date: 20200804
  Transmission Date: 20201103
  Serious: Yes (Other)
  Sender: FDA-Public Use
  Company Number: IT-TEVA-2020-IT-1808929

PATIENT
  Age: 41 Year
  Sex: Female

DRUGS (2)
  1. IBUPROFEN. [Suspect]
     Active Substance: IBUPROFEN
     Indication: ANTIINFLAMMATORY THERAPY
     Dosage: 1 DOSAGE FORMS
     Route: 048
     Dates: start: 20200617, end: 20200617
  2. LIDOCAINE. [Suspect]
     Active Substance: LIDOCAINE
     Indication: DENTAL OPERATION
     Dosage: 1 DOSAGE FORMS
     Route: 065
     Dates: start: 20200617, end: 20200617

REACTIONS (4)
  - Urticaria [Recovering/Resolving]
  - Dyspnoea [Recovering/Resolving]
  - Pruritus [Recovering/Resolving]
  - Hypersensitivity [Recovering/Resolving]

NARRATIVE: CASE EVENT DATE: 20200617
